FAERS Safety Report 5173839-5 (Version None)
Quarter: 2006Q4

REPORT INFORMATION
  Report Type: 
  Country: None (occurrence: None)
  Receive Date: 20061214
  Receipt Date: 20061211
  Transmission Date: 20070319
  Serious: Yes (Death)
  Sender: FDA-Public Use
  Company Number: JP-GLAXOSMITHKLINE-B0450302A

PATIENT
  Age: 10 Year
  Sex: Female

DRUGS (3)
  1. ALKERAN [Suspect]
     Indication: BONE MARROW CONDITIONING REGIMEN
     Dosage: 100MGM2 PER DAY
     Route: 042
     Dates: start: 20051110, end: 20051111
  2. PARAPLATIN [Concomitant]
     Route: 042
  3. ETOPOSIDE [Concomitant]
     Route: 042

REACTIONS (1)
  - CAPILLARY LEAK SYNDROME [None]
